FAERS Safety Report 16119773 (Version 1)
Quarter: 2019Q1

REPORT INFORMATION
  Report Type: Spontaneous
  Country: US (occurrence: US)
  Receive Date: 20190326
  Receipt Date: 20190326
  Transmission Date: 20190418
  Serious: Yes (Other)
  Sender: FDA-Public Use
  Company Number: US-PFIZER INC-2019120788

PATIENT
  Age: 67 Year
  Sex: Female
  Weight: 87.9 kg

DRUGS (1)
  1. ZYVOX [Suspect]
     Active Substance: LINEZOLID
     Indication: CYSTITIS
     Dosage: 600 MG, 2X/DAY
     Route: 048
     Dates: start: 20190317, end: 20190318

REACTIONS (18)
  - Condition aggravated [Unknown]
  - Dizziness [Not Recovered/Not Resolved]
  - Nausea [Unknown]
  - Swollen tongue [Not Recovered/Not Resolved]
  - Tongue blistering [Not Recovered/Not Resolved]
  - Balance disorder [Unknown]
  - Diarrhoea [Unknown]
  - Headache [Unknown]
  - Paraesthesia [Unknown]
  - Pharyngeal oedema [Not Recovered/Not Resolved]
  - Lip blister [Not Recovered/Not Resolved]
  - Dyspnoea [Unknown]
  - Vision blurred [Not Recovered/Not Resolved]
  - Abdominal pain upper [Not Recovered/Not Resolved]
  - Hypersensitivity [Unknown]
  - Decreased appetite [Unknown]
  - Upper respiratory tract congestion [Unknown]
  - Dysarthria [Unknown]
